FAERS Safety Report 21273626 (Version 1)
Quarter: 2022Q3

REPORT INFORMATION
  Report Type: Spontaneous
  Country: US (occurrence: None)
  Receive Date: 20220830
  Receipt Date: 20220830
  Transmission Date: 20221026
  Serious: Yes (Other)
  Sender: FDA-Public Use
  Company Number: None

PATIENT
  Age: 40 Year
  Sex: Female

DRUGS (1)
  1. CAPECITABINE [Suspect]
     Active Substance: CAPECITABINE
     Dosage: 3000MG OTHER  ORAL?
     Route: 048

REACTIONS (5)
  - White blood cell count decreased [None]
  - Therapy interrupted [None]
  - Glycosylated haemoglobin increased [None]
  - Blood glucose increased [None]
  - Fatigue [None]

NARRATIVE: CASE EVENT DATE: 20220830
